FAERS Safety Report 8906456 (Version 3)
Quarter: 2013Q1

REPORT INFORMATION
  Report Type: Spontaneous
  Country: US (occurrence: None)
  Receive Date: 20121108
  Receipt Date: 20121214
  Transmission Date: 20140127
  Serious: Yes (Hospitalization)
  Sender: FDA-Public Use
  Company Number: 2012MPI00486

PATIENT
  Age: 66 Year
  Sex: Male
  Weight: 70 kg

DRUGS (13)
  1. BRENTUXIMAB VEDOTIN [Suspect]
     Indication: MYCOSIS FUNGOIDES
     Dosage: 1.8 MG/M2, Q21D, INTRAVENOUS
     Route: 042
     Dates: start: 20121015, end: 20121015
  2. ASPIRIN (ACETYLSALICYLIC ACID) [Concomitant]
  3. TENORMIN (ATENOLOL) [Concomitant]
  4. WELLBUTRIN (BUPROPION HYDROCHLORIDE) [Concomitant]
  5. COLACE (DOCUSATE SODIUM) [Concomitant]
  6. ZETIA (EZETIMIBE) [Concomitant]
  7. VISTARIL (HYDROXYZINE EMBONATE) [Concomitant]
  8. SYNTHROID (LEVOTHYROXINE SODIUM) [Concomitant]
  9. ZOFRAN (ONDANSETRON HYDROCHLORIDE) [Concomitant]
  10. PRAVACHOL [Concomitant]
  11. RESTORIL (TEMAZEPAM) [Concomitant]
  12. TRAZODONE (TRAZODONE) [Concomitant]
  13. FENOFIBRATE (FENOFIBRATE) [Concomitant]

REACTIONS (4)
  - Diverticulitis [None]
  - Blood pressure decreased [None]
  - Haemorrhoidal haemorrhage [None]
  - Constipation [None]
